FAERS Safety Report 16755526 (Version 1)
Quarter: 2019Q3

REPORT INFORMATION
  Report Type: Spontaneous
  Country: TR (occurrence: TR)
  Receive Date: 20190829
  Receipt Date: 20190829
  Transmission Date: 20191005
  Serious: Yes (Hospitalization, Other)
  Sender: FDA-Public Use
  Company Number: PHHY2019TR199336

PATIENT
  Sex: Female
  Weight: 90 kg

DRUGS (2)
  1. TRILEPTAL [Suspect]
     Active Substance: OXCARBAZEPINE
     Indication: EPILEPSY
     Dosage: 600 MG, BID (2X1) (8 AM AND 8 PM)
     Route: 048
  2. EPIXX [Concomitant]
     Active Substance: LEVETIRACETAM
     Indication: EPILEPSY
     Dosage: 750 MG, BID (2X1) (MORNING AND EVENING, 1 HOUR AFTER TRILEPTAL)
     Route: 048

REACTIONS (8)
  - Head injury [Unknown]
  - Seizure [Unknown]
  - Obesity [Not Recovered/Not Resolved]
  - Tremor [Unknown]
  - Haemorrhage [Unknown]
  - Drug ineffective [Not Recovered/Not Resolved]
  - Fall [Unknown]
  - Weight increased [Unknown]
